FAERS Safety Report 9696116 (Version 2)
Quarter: 2013Q4

REPORT INFORMATION
  Report Type: Spontaneous
  Country: CA (occurrence: CA)
  Receive Date: 20131119
  Receipt Date: 20131206
  Transmission Date: 20140711
  Serious: Yes (Life-Threatening, Other)
  Sender: FDA-Public Use
  Company Number: CA-ASTRAZENECA-2013SE83709

PATIENT
  Age: 61 Year
  Sex: Female
  Weight: 97 kg

DRUGS (12)
  1. SEROQUEL [Suspect]
     Route: 048
  2. SEROQUEL [Suspect]
     Route: 048
  3. MORPHINE SULFATE [Suspect]
     Dosage: MS CONTIN
     Route: 048
  4. MORPHINE SULFATE [Suspect]
     Dosage: STATEX
     Route: 048
  5. EFFEXOR XR / VENLAFAXINE XR [Suspect]
     Route: 048
  6. BETAMETHASONE [Suspect]
     Route: 065
  7. TYLENOL WITH CODEINE NO. 3 [Suspect]
     Route: 048
  8. ARTHROTEC [Suspect]
     Route: 048
  9. ELOCOM [Suspect]
     Dosage: AS REQUIRED
     Route: 065
  10. LYRICA [Suspect]
     Route: 048
  11. FLONASE - AEM-SUS NAS [Concomitant]
     Dosage: 50 MCG/ MD , METERED DOSE (PUMP)
  12. BETADERM [Concomitant]

REACTIONS (2)
  - Drug-induced liver injury [Unknown]
  - Hepatitis [Unknown]
